FAERS Safety Report 6428623-9 (Version None)
Quarter: 2009Q4

REPORT INFORMATION
  Report Type: 
  Country: None (occurrence: None)
  Receive Date: 20091105
  Receipt Date: 20091026
  Transmission Date: 20100525
  Serious: Yes (Other)
  Sender: FDA-Public Use
  Company Number: CA-PFIZER INC-2009277844

PATIENT
  Age: 71 Year
  Sex: Male
  Weight: 77.098 kg

DRUGS (7)
  1. LIPITOR [Suspect]
     Indication: BLOOD CHOLESTEROL INCREASED
     Dosage: 10 MG, 1X/DAY (AT NIGHT)
     Dates: start: 20000601
  2. LIPITOR [Suspect]
     Dosage: 80 MG, 1X/DAY (AT NIGHT)
  3. ALTACE [Concomitant]
     Dosage: UNK
  4. RAMIPRIL [Concomitant]
     Indication: BLOOD PRESSURE
     Dosage: 5 MG, 1X/DAY
     Dates: start: 20061101
  5. RAMIPRIL [Concomitant]
     Indication: CARDIAC DISORDER
  6. BISOPROLOL [Concomitant]
     Indication: CARDIAC DISORDER
     Dosage: 5 MG, 1X/DAY
     Dates: start: 20061101
  7. BISOPROLOL [Concomitant]
     Indication: BLOOD PRESSURE

REACTIONS (6)
  - AORTIC ANEURYSM [None]
  - BLOOD BILIRUBIN INCREASED [None]
  - DRUG INTERACTION [None]
  - MUSCLE SPASMS [None]
  - RASH MACULAR [None]
  - SILENT MYOCARDIAL INFARCTION [None]
